FAERS Safety Report 6403218-1 (Version None)
Quarter: 2009Q4

REPORT INFORMATION
  Report Type: 
  Country: None (occurrence: None)
  Receive Date: 20091016
  Receipt Date: 20091006
  Transmission Date: 20100525
  Serious: Yes (Life-Threatening)
  Sender: FDA-Public Use
  Company Number: GB-AMGEN-US368427

PATIENT
  Age: 64 Year
  Weight: 74 kg

DRUGS (15)
  1. ENBREL [Suspect]
     Indication: RHEUMATOID ARTHRITIS
     Route: 058
     Dates: start: 20090529, end: 20090605
  2. AMITRIPTYLINE HYDROCHLORIDE [Concomitant]
     Route: 048
  3. CETIRIZINE HYDROCHLORIDE [Concomitant]
     Route: 048
  4. CLENIL [Concomitant]
     Route: 055
  5. CO-CODAMOL [Concomitant]
     Route: 048
  6. DIPROBASE [Concomitant]
     Dosage: UNKNOWN
     Route: 061
  7. ZETIA [Concomitant]
     Indication: HYPERCHOLESTEROLAEMIA
     Route: 048
  8. LORAZEPAM [Concomitant]
     Route: 048
  9. LOSEC [Concomitant]
     Route: 048
  10. METFORMIN HYDROCHLORIDE [Concomitant]
     Indication: DIABETES MELLITUS
     Route: 048
  11. NICORANDIL [Concomitant]
     Route: 048
  12. NOVOMIX [Concomitant]
     Dosage: UNKNOWN
     Route: 065
  13. VALSARTAN [Concomitant]
     Route: 048
  14. VENTOLIN [Concomitant]
     Route: 055
  15. ADIZEM-XL PLUS [Concomitant]
     Indication: HYPERTENSION
     Route: 048

REACTIONS (4)
  - DYSPHAGIA [None]
  - DYSPNOEA [None]
  - PARAESTHESIA ORAL [None]
  - WHEEZING [None]
